FAERS Safety Report 25204466 (Version 2)
Quarter: 2025Q3

REPORT INFORMATION
  Report Type: Report from Study
  Country: US (occurrence: US)
  Receive Date: 20250416
  Receipt Date: 20250818
  Transmission Date: 20251021
  Serious: Yes (Other)
  Sender: TAKEDA
  Company Number: US-TAKEDA-2025TUS035132

PATIENT
  Sex: Female
  Weight: 114.78 kg

DRUGS (3)
  1. VEDOLIZUMAB [Suspect]
     Active Substance: VEDOLIZUMAB
     Indication: Colitis ulcerative
  2. VEDOLIZUMAB [Suspect]
     Active Substance: VEDOLIZUMAB
     Indication: Colitis ulcerative
     Dosage: 108 MILLIGRAM, Q2WEEKS
  3. VEDOLIZUMAB [Suspect]
     Active Substance: VEDOLIZUMAB
     Dosage: 108 MILLIGRAM, Q2WEEKS

REACTIONS (33)
  - Haematochezia [Unknown]
  - Rectal haemorrhage [Unknown]
  - Frequent bowel movements [Unknown]
  - Dysphagia [Unknown]
  - Hypoacusis [Unknown]
  - Anxiety [Unknown]
  - Wheezing [Unknown]
  - Diarrhoea [Unknown]
  - Thirst [Unknown]
  - Product dose omission issue [Unknown]
  - Eructation [Unknown]
  - Hypoaesthesia [Unknown]
  - Insomnia [Unknown]
  - Pollakiuria [Unknown]
  - Gingival bleeding [Unknown]
  - Dyspnoea exertional [Unknown]
  - Hyperhidrosis [Unknown]
  - Dyspnoea [Unknown]
  - Abdominal pain [Unknown]
  - Dizziness [Unknown]
  - Vomiting [Unknown]
  - Dyspepsia [Unknown]
  - Flatulence [Unknown]
  - Muscular weakness [Unknown]
  - Constipation [Unknown]
  - Abdominal distension [Unknown]
  - Paraesthesia [Unknown]
  - Hypersensitivity [Unknown]
  - Fatigue [Not Recovered/Not Resolved]
  - Cough [Unknown]
  - Nausea [Unknown]
  - Back pain [Unknown]
  - Arthralgia [Unknown]
